FAERS Safety Report 10433722 (Version 1)
Quarter: 2014Q3

REPORT INFORMATION
  Report Type: Spontaneous
  Country: GR (occurrence: GR)
  Receive Date: 20140905
  Receipt Date: 20140905
  Transmission Date: 20150326
  Serious: Yes (Other)
  Sender: FDA-Public Use
  Company Number: GR-SA-2014SA117704

PATIENT
  Age: 35 Year
  Sex: Male

DRUGS (1)
  1. CLOMIFENE CITRATE [Suspect]
     Active Substance: CLOMIPHENE
     Indication: INFERTILITY
     Route: 065

REACTIONS (4)
  - Vision blurred [Recovered/Resolved]
  - Retinal vein occlusion [Recovered/Resolved]
  - Visual acuity reduced [Recovered/Resolved]
  - Off label use [Unknown]
